FAERS Safety Report 6130486-6 (Version None)
Quarter: 2009Q1

REPORT INFORMATION
  Report Type: 
  Country: None (occurrence: None)
  Receive Date: 20090323
  Receipt Date: 20090310
  Transmission Date: 20090719
  Serious: Yes (Other)
  Sender: FDA-Public Use
  Company Number: 1022556-2009-00019

PATIENT
  Sex: Male

DRUGS (1)
  1. SELSUN BLUE NAT ISLAND BREEZE 11 OZ [Suspect]
     Indication: DANDRUFF
     Dosage: 2 X, TOPICAL
     Route: 061
     Dates: start: 20090301, end: 20090304

REACTIONS (2)
  - APPLICATION SITE PRURITUS [None]
  - APPLICATION SITE SWELLING [None]
